FAERS Safety Report 23258724 (Version 1)
Quarter: 2023Q4

REPORT INFORMATION
  Report Type: Report from Study
  Country: US (occurrence: US)
  Receive Date: 20231204
  Receipt Date: 20231204
  Transmission Date: 20240110
  Serious: Yes (Hospitalization, Other)
  Sender: FDA-Public Use
  Company Number: US-ABBVIE-22K-163-4378279-00

PATIENT
  Age: 6 Month
  Sex: Male
  Weight: 6.5 kg

DRUGS (4)
  1. SYNAGIS [Suspect]
     Active Substance: PALIVIZUMAB
     Indication: Respiratory disorder prophylaxis
     Dosage: MONTHLY
     Route: 030
     Dates: start: 20220214, end: 20220214
  2. QUATTROVAC [Suspect]
     Active Substance: DIPHTHERIA AND TETANUS TOXOIDS AND ACELLULAR PERTUSSIS VACCINE ADSORBED\POLIOVIRUS VACCINE, INACTIVA
     Indication: Product used for unknown indication
     Route: 058
     Dates: start: 20220214, end: 20220214
  3. BCG VACCINE [Suspect]
     Active Substance: BCG VACCINE
     Indication: Antibiotic prophylaxis
     Dosage: 12.0MG ONCE/SINGLE ADMINISTRATION
     Route: 058
     Dates: start: 20220214, end: 20220214
  4. INVESTIGATIONAL PRODUCT [Suspect]
     Active Substance: INVESTIGATIONAL PRODUCT
     Indication: Antiviral prophylaxis
     Dosage: ONCE/SINGLE ADMINISTRATION
     Route: 058
     Dates: start: 20210720, end: 20210720

REACTIONS (8)
  - Clonic convulsion [Recovered/Resolved]
  - Seizure [Recovering/Resolving]
  - Joint ankylosis [Recovered/Resolved]
  - Oral disorder [Recovered/Resolved]
  - Vision blurred [Recovered/Resolved]
  - Vomiting [Recovered/Resolved]
  - Cyanosis [Recovered/Resolved]
  - Maternal exposure during pregnancy [Unknown]

NARRATIVE: CASE EVENT DATE: 20220222
